FAERS Safety Report 7851699-9 (Version None)
Quarter: 2011Q4

REPORT INFORMATION
  Report Type: 
  Country: None (occurrence: None)
  Receive Date: 20111026
  Receipt Date: 20111019
  Transmission Date: 20120403
  Serious: Yes (Other)
  Sender: FDA-Public Use
  Company Number: US-AMGEN-USASP2011020132

PATIENT
  Age: 76 Year
  Sex: Female

DRUGS (10)
  1. NPLATE [Suspect]
     Dosage: 145 MUG, UNK
     Dates: end: 20110204
  2. VICODIN [Concomitant]
  3. NPLATE [Suspect]
     Indication: IDIOPATHIC THROMBOCYTOPENIC PURPURA
     Dosage: UNK
     Dates: start: 20101101
  4. GLYBURIDE [Concomitant]
  5. SIMVASTATIN [Concomitant]
  6. ACTOS [Concomitant]
  7. NPLATE [Suspect]
     Dosage: 2 MUG/KG, UNK
     Dates: end: 20110110
  8. QUINAPRIL [Concomitant]
  9. NEXIUM [Concomitant]
  10. LIPITOR [Concomitant]

REACTIONS (5)
  - PLATELET COUNT ABNORMAL [None]
  - THROMBOCYTOPENIA [None]
  - GASTROINTESTINAL DISORDER [None]
  - ABDOMINAL PAIN [None]
  - NAUSEA [None]
